FAERS Safety Report 5737009-1 (Version None)
Quarter: 2008Q2

REPORT INFORMATION
  Report Type: 
  Country: None (occurrence: None)
  Receive Date: 20080512
  Receipt Date: 20080512
  Transmission Date: 20081010
  Serious: Yes (Other)
  Sender: FDA-Public Use
  Company Number: None

PATIENT
  Age: 65 Year
  Sex: Female
  Weight: 70.3075 kg

DRUGS (1)
  1. LIPITOR [Suspect]
     Indication: BLOOD CHOLESTEROL INCREASED
     Dosage: 20 MG OD PO
     Route: 048
     Dates: start: 20050101, end: 20080101

REACTIONS (4)
  - AMNESIA [None]
  - DIZZINESS [None]
  - MALAISE [None]
  - MEMORY IMPAIRMENT [None]
